FAERS Safety Report 15682387 (Version 3)
Quarter: 2018Q4

REPORT INFORMATION
  Report Type: Spontaneous
  Country: NZ (occurrence: NZ)
  Receive Date: 20181203
  Receipt Date: 20181205
  Transmission Date: 20190205
  Serious: Yes (Hospitalization)
  Sender: FDA-Public Use
  Company Number: NZ-JNJFOC-20181200292

PATIENT
  Sex: Male

DRUGS (1)
  1. TRAMADOL HYDROCHLORIDE. [Suspect]
     Active Substance: TRAMADOL HYDROCHLORIDE
     Indication: PRODUCT USED FOR UNKNOWN INDICATION
     Route: 063
     Dates: start: 20180513, end: 20180520

REACTIONS (5)
  - Somnolence neonatal [Recovered/Resolved with Sequelae]
  - Selective eating disorder [Recovered/Resolved with Sequelae]
  - Weight decrease neonatal [Recovered/Resolved with Sequelae]
  - Respiratory disorder neonatal [Recovered/Resolved with Sequelae]
  - Exposure via breast milk [Unknown]

NARRATIVE: CASE EVENT DATE: 201805
